FAERS Safety Report 5203655-7 (Version None)
Quarter: 2007Q1

REPORT INFORMATION
  Report Type: 
  Country: None (occurrence: None)
  Receive Date: 20070109
  Receipt Date: 20070109
  Transmission Date: 20070707
  Serious: No
  Sender: FDA-Public Use
  Company Number: None

PATIENT
  Age: 61 Year
  Sex: Female
  Weight: 87 kg

DRUGS (12)
  1. THYMOGLOBULIN [Suspect]
     Indication: TRANSPLANT REJECTION
     Dosage: 22 MG OR 44 MR DAILY IV
     Route: 042
     Dates: start: 20061204, end: 20061204
  2. THYMOGLOBULIN [Suspect]
     Indication: TRANSPLANT REJECTION
     Dosage: 22 MG OR 44 MR DAILY IV
     Route: 042
     Dates: start: 20061212, end: 20061220
  3. CYCLOSPORINE [Concomitant]
  4. PREDNISONE [Concomitant]
  5. CLONIDINE [Concomitant]
  6. LIPITOR [Concomitant]
  7. ASCORBIC ACID [Concomitant]
  8. CALCIUM CARBONATE WITH D [Concomitant]
  9. MAGOX [Concomitant]
  10. MULTI-VITAMIN [Concomitant]
  11. PLAVIX [Concomitant]
  12. CELLCEPT [Concomitant]

REACTIONS (1)
  - LYMPHOCYTE COUNT DECREASED [None]
